FAERS Safety Report 4302650-X (Version None)
Quarter: 2004Q1

REPORT INFORMATION
  Report Type: 
  Country: None (occurrence: None)
  Receive Date: 20040223
  Receipt Date: 20040223
  Transmission Date: 20041129
  Serious: Yes (Congenital Anomaly)
  Sender: FDA-Public Use
  Company Number: None

PATIENT
  Age: 39 Year
  Sex: Male
  Weight: 72.5755 kg

DRUGS (2)
  1. CRESTOR [Suspect]
     Indication: BLOOD CHOLESTEROL
     Dosage: 10MG DAILY ORAL
     Route: 048
     Dates: start: 20031201, end: 20040104
  2. CRESTOR [Suspect]
     Indication: BLOOD CHOLESTEROL
     Dosage: 10MG DAILY ORAL
     Route: 048
     Dates: start: 20040212, end: 20040214

REACTIONS (5)
  - COGNITIVE DISORDER [None]
  - DRUG TOXICITY [None]
  - DYSARTHRIA [None]
  - HYPOKINESIA [None]
  - MEMORY IMPAIRMENT [None]
